FAERS Safety Report 23746163 (Version 1)
Quarter: 2024Q2

REPORT INFORMATION
  Report Type: Report from Study
  Country: US (occurrence: US)
  Receive Date: 20240416
  Receipt Date: 20240416
  Transmission Date: 20240715
  Serious: Yes (Other)
  Sender: FDA-Public Use
  Company Number: US-ABBVIE-5718655

PATIENT
  Sex: Female

DRUGS (1)
  1. SKYRIZI [Suspect]
     Active Substance: RISANKIZUMAB-RZAA
     Indication: Psoriasis
     Route: 058
     Dates: start: 20231218, end: 20240405

REACTIONS (10)
  - Haemorrhoids [Not Recovered/Not Resolved]
  - Skin infection [Recovering/Resolving]
  - Nausea [Recovering/Resolving]
  - Vomiting [Recovered/Resolved]
  - Abscess [Recovering/Resolving]
  - Pyrexia [Recovered/Resolved]
  - Proctalgia [Not Recovered/Not Resolved]
  - Dermatitis acneiform [Recovering/Resolving]
  - Necrotising fasciitis [Unknown]
  - Feeling abnormal [Unknown]
